FAERS Safety Report 6897973-4 (Version None)
Quarter: 2010Q3

REPORT INFORMATION
  Report Type: 
  Country: None (occurrence: None)
  Receive Date: 20100802
  Receipt Date: 20070811
  Transmission Date: 20110219
  Serious: No
  Sender: FDA-Public Use
  Company Number: US-PFIZER INC-2007067957

PATIENT
  Sex: Female
  Weight: 59.1 kg

DRUGS (3)
  1. LYRICA [Suspect]
     Indication: HYPERAESTHESIA
     Route: 048
     Dates: start: 20070727
  2. LYRICA [Suspect]
     Indication: BURNING SENSATION
  3. SEROQUEL [Concomitant]
     Indication: ANXIETY

REACTIONS (3)
  - DYSURIA [None]
  - GASTROINTESTINAL MOTILITY DISORDER [None]
  - INFECTION [None]
